FAERS Safety Report 24019754 (Version 2)
Quarter: 2025Q3

REPORT INFORMATION
  Report Type: Spontaneous
  Country: EU (occurrence: EU)
  Receive Date: 20240627
  Receipt Date: 20250728
  Transmission Date: 20251020
  Serious: Yes (Other)
  Sender: GLAXOSMITHKLINE
  Company Number: EU-GLAXOSMITHKLINE-DE2024EME077681

PATIENT
  Sex: Female
  Weight: 75 kg

DRUGS (4)
  1. DOSTARLIMAB [Suspect]
     Active Substance: DOSTARLIMAB
     Indication: Ovarian cancer
  2. DOSTARLIMAB [Suspect]
     Active Substance: DOSTARLIMAB
     Indication: Endometrial cancer
  3. DOSTARLIMAB [Suspect]
     Active Substance: DOSTARLIMAB
  4. RIVAROXABAN [Concomitant]
     Active Substance: RIVAROXABAN
     Indication: Anticoagulant therapy

REACTIONS (4)
  - Diabetes mellitus [Not Recovered/Not Resolved]
  - Neutropenia [Recovered/Resolved]
  - Diabetic metabolic decompensation [Not Recovered/Not Resolved]
  - Product use in unapproved indication [Unknown]

NARRATIVE: CASE EVENT DATE: 20230413
